FAERS Safety Report 7635398-4 (Version None)
Quarter: 2011Q3

REPORT INFORMATION
  Report Type: 
  Country: None (occurrence: None)
  Receive Date: 20110726
  Receipt Date: 20110715
  Transmission Date: 20111222
  Serious: Yes (Other)
  Sender: FDA-Public Use
  Company Number: US-GENZYME-CERZ-1002155

PATIENT
  Sex: Male
  Weight: 72 kg

DRUGS (1)
  1. CEREZYME [Suspect]
     Indication: GAUCHER'S DISEASE
     Dosage: 33 U/KG, Q4W
     Route: 042
     Dates: start: 19910101

REACTIONS (1)
  - TRACHEAL MASS [None]
